FAERS Safety Report 17566562 (Version 1)
Quarter: 2020Q1

REPORT INFORMATION
  Report Type: Spontaneous
  Country: MX (occurrence: MX)
  Receive Date: 20200320
  Receipt Date: 20200320
  Transmission Date: 20200409
  Serious: Yes (Other)
  Sender: FDA-Public Use
  Company Number: MX-TEVA-2020-MX-1207908

PATIENT
  Age: 41 Year
  Sex: Female

DRUGS (1)
  1. COPAXONE [Suspect]
     Active Substance: GLATIRAMER ACETATE
     Indication: MULTIPLE SCLEROSIS
     Route: 058
     Dates: start: 20170126, end: 20200308

REACTIONS (4)
  - Application site pain [Recovered/Resolved]
  - Dyspnoea [Recovered/Resolved]
  - Injection site erythema [Recovered/Resolved]
  - Embolia cutis medicamentosa [Recovering/Resolving]
